FAERS Safety Report 4936374-2 (Version None)
Quarter: 2006Q1

REPORT INFORMATION
  Report Type: 
  Country: None (occurrence: None)
  Receive Date: 20060302
  Receipt Date: 20060209
  Transmission Date: 20060701
  Serious: Yes (Other)
  Sender: FDA-Public Use
  Company Number: US200602003979

PATIENT
  Age: 81 Year
  Sex: Female

DRUGS (2)
  1. FORTEO [Suspect]
     Dates: start: 20050101
  2. FORTEO [Concomitant]

REACTIONS (2)
  - CARDIAC FIBRILLATION [None]
  - MYOCARDIAL INFARCTION [None]
